FAERS Safety Report 16400178 (Version 1)
Quarter: 2019Q2

REPORT INFORMATION
  Report Type: Spontaneous
  Country: US (occurrence: US)
  Receive Date: 20190606
  Receipt Date: 20190606
  Transmission Date: 20190711
  Serious: No
  Sender: FDA-Public Use
  Company Number: US-ALLERGAN-1830520US

PATIENT
  Age: 62 Year
  Sex: Female

DRUGS (1)
  1. KYBELLA [Suspect]
     Active Substance: DEOXYCHOLIC ACID
     Indication: FAT TISSUE INCREASED
     Dosage: 3.5 VIALS(0.2CC WERE INJECTED SPACED 1 CM APART), SINGLE
     Route: 058
     Dates: start: 20180523, end: 20180523

REACTIONS (1)
  - Injection site swelling [Recovering/Resolving]
